FAERS Safety Report 10459136 (Version 2)
Quarter: 2015Q1

REPORT INFORMATION
  Report Type: Spontaneous
  Country: US (occurrence: None)
  Receive Date: 20140915
  Receipt Date: 20150327
  Transmission Date: 20150720
  Serious: Yes (Other)
  Sender: FDA-Public Use
  Company Number: 201408152

PATIENT
  Age: 75 Year
  Sex: Male
  Weight: 133.81 kg

DRUGS (17)
  1. BACLOFEN. [Concomitant]
     Active Substance: BACLOFEN
  2. LISINOPRIL. [Concomitant]
     Active Substance: LISINOPRIL
  3. CLOPIDOGREL [Concomitant]
     Active Substance: CLOPIDOGREL BISULFATE
  4. FINASTERIDE. [Concomitant]
     Active Substance: FINASTERIDE
  5. FLUOCINOLONE (FLUOCINOLONE ACETONIDE) [Concomitant]
  6. LEVOTHYROXINE [Concomitant]
     Active Substance: LEVOTHYROXINE
  7. SPIRIVA (TIOTROPIUM BROMIDE) [Concomitant]
  8. PAROXETINE [Concomitant]
     Active Substance: PAROXETINE\PAROXETINE HYDROCHLORIDE
  9. NITROSTAT (GLYCERYL TRINITRATE) [Concomitant]
  10. HYDROCORTISONE. [Concomitant]
     Active Substance: HYDROCORTISONE
  11. ADVAIR DISKUS [Concomitant]
     Active Substance: FLUTICASONE PROPIONATE\SALMETEROL XINAFOATE
  12. TESTIM [Suspect]
     Active Substance: TESTOSTERONE
     Indication: BLOOD TESTOSTERONE DECREASED
     Route: 062
     Dates: start: 200406, end: 201402
  13. CARVEDILOL. [Concomitant]
     Active Substance: CARVEDILOL
  14. ASPIRIN (ACETYLSALICYLIC ACID) [Concomitant]
     Active Substance: ASPIRIN
  15. BROMOCRIPTINE [Concomitant]
     Active Substance: BROMOCRIPTINE
  16. PRAVASTATIN SODIUM. [Concomitant]
     Active Substance: PRAVASTATIN SODIUM
  17. LANSOPRAZOLE. [Concomitant]
     Active Substance: LANSOPRAZOLE

REACTIONS (9)
  - Unevaluable event [None]
  - Anxiety [None]
  - Anhedonia [None]
  - Economic problem [None]
  - Sexual relationship change [None]
  - Myocardial infarction [None]
  - Family stress [None]
  - Injury [None]
  - Pain [None]

NARRATIVE: CASE EVENT DATE: 201008
